FAERS Safety Report 7276624-3 (Version None)
Quarter: 2011Q1

REPORT INFORMATION
  Report Type: 
  Country: None (occurrence: None)
  Receive Date: 20110204
  Receipt Date: 20101217
  Transmission Date: 20110831
  Serious: Yes (Other)
  Sender: FDA-Public Use
  Company Number: US-BAYER-201022210NA

PATIENT
  Sex: Female
  Weight: 88.435 kg

DRUGS (6)
  1. YASMIN [Suspect]
     Indication: PRODUCT USED FOR UNKNOWN INDICATION
     Dates: start: 20080301, end: 20080501
  2. XYZAL [Concomitant]
     Indication: MULTIPLE ALLERGIES
     Dosage: 5 MG, UNK
  3. YAZ [Suspect]
     Indication: PREMENSTRUAL SYNDROME
  4. VERAMYST [Concomitant]
     Indication: MULTIPLE ALLERGIES
     Dosage: 27.5 MG, UNK
  5. YAZ [Suspect]
     Indication: ACNE
     Dosage: UNK
     Dates: start: 20080301, end: 20080530
  6. LASIX [Concomitant]

REACTIONS (2)
  - PAIN [None]
  - DEEP VEIN THROMBOSIS [None]
